FAERS Safety Report 6445731-7 (Version None)
Quarter: 2009Q4

REPORT INFORMATION
  Report Type: 
  Country: None (occurrence: None)
  Receive Date: 20091118
  Receipt Date: 20091118
  Transmission Date: 20100525
  Serious: Yes (Other)
  Sender: FDA-Public Use
  Company Number: None

PATIENT
  Sex: Male

DRUGS (1)
  1. CLOZARIL [Suspect]
     Dosage: 100MG THREE TIMES Q AM AND THREE TIMES Q PM
     Dates: start: 20080101, end: 20090101

REACTIONS (3)
  - HALLUCINATION, AUDITORY [None]
  - PARANOIA [None]
  - PRODUCT SUBSTITUTION ISSUE [None]
